FAERS Safety Report 8552354-2 (Version None)
Quarter: 2012Q3

REPORT INFORMATION
  Report Type: 
  Country: None (occurrence: None)
  Receive Date: 20120723
  Receipt Date: 20120723
  Transmission Date: 20120928
  Serious: Yes (Hospitalization)
  Sender: FDA-Public Use
  Company Number: None

PATIENT
  Sex: Male
  Weight: 79.7 kg

DRUGS (1)
  1. ALFA 2 INTERFERON 2B (INTRON) [Suspect]
     Dosage: 120 MILLION IU
     Dates: end: 20120718

REACTIONS (1)
  - VOMITING [None]
